FAERS Safety Report 8261167-0 (Version None)
Quarter: 2012Q2

REPORT INFORMATION
  Report Type: 
  Country: None (occurrence: None)
  Receive Date: 20120405
  Receipt Date: 20120327
  Transmission Date: 20120825
  Serious: Yes (Disabling, Other)
  Sender: FDA-Public Use
  Company Number: US-JNJFOC-20110908830

PATIENT
  Sex: Male
  Weight: 71.67 kg

DRUGS (19)
  1. ASPIRIN [Concomitant]
     Route: 048
  2. LISINOPRIL [Concomitant]
     Route: 048
  3. AMLODIPINE BESYLATE [Concomitant]
     Route: 048
  4. LEVAQUIN [Suspect]
     Indication: PRODUCT USED FOR UNKNOWN INDICATION
     Route: 042
     Dates: start: 20110130
  5. SULFAMETHOXAZOLE [Concomitant]
     Route: 048
  6. CLOBETASOL PROPIONATE [Concomitant]
     Route: 065
  7. HYDRALAZINE HCL [Concomitant]
     Route: 048
  8. SIMVASTATIN [Concomitant]
     Route: 048
  9. LISINOPRIL [Concomitant]
     Route: 048
  10. CLARITHROMYCIN [Concomitant]
     Route: 048
  11. HYDROCHLOROTHIAZIDE [Concomitant]
     Route: 048
  12. GLYBURIDE [Concomitant]
     Route: 048
  13. CLONIDINE HCL [Concomitant]
     Route: 048
  14. RANITIDINE HCL [Concomitant]
     Route: 048
  15. METOPROLOL SUCCINATE [Concomitant]
     Route: 048
  16. HYDROCODONE BITARTRATE AND ACETAMINOPHEN [Concomitant]
     Route: 048
  17. HYDROXYZINE HCL [Concomitant]
     Route: 048
  18. BETAMETHASONE DIPROPIONATE [Concomitant]
     Route: 065
  19. FLUOCINONIDE [Concomitant]
     Route: 065

REACTIONS (10)
  - BLINDNESS UNILATERAL [None]
  - HYPOGLYCAEMIA [None]
  - HYPOAESTHESIA [None]
  - EYE HAEMORRHAGE [None]
  - RASH [None]
  - TENDON INJURY [None]
  - MYALGIA [None]
  - EYE DISORDER [None]
  - MUSCULAR WEAKNESS [None]
  - VASCULAR CALCIFICATION [None]
